FAERS Safety Report 20200755 (Version 1)
Quarter: 2021Q4

REPORT INFORMATION
  Report Type: Spontaneous
  Country: GB (occurrence: GB)
  Receive Date: 20211217
  Receipt Date: 20211217
  Transmission Date: 20220304
  Serious: Yes (Hospitalization, Disabling, Other)
  Sender: FDA-Public Use
  Company Number: None

PATIENT
  Age: 51 Year
  Sex: Female
  Weight: 52 kg

DRUGS (4)
  1. PREGABALIN [Suspect]
     Active Substance: PREGABALIN
     Indication: Fibromyalgia
     Dosage: 75
     Route: 048
     Dates: start: 2010, end: 2019
  2. BISACODYL [Concomitant]
     Active Substance: BISACODYL
     Indication: Ill-defined disorder
  3. DIAZEPAM [Concomitant]
     Active Substance: DIAZEPAM
     Indication: Ill-defined disorder
  4. OMEPRAZOLE [Concomitant]
     Active Substance: OMEPRAZOLE
     Indication: Ill-defined disorder

REACTIONS (11)
  - Diarrhoea [Recovered/Resolved]
  - Medication error [Unknown]
  - Vertigo [Recovered/Resolved with Sequelae]
  - Tachycardia [Recovered/Resolved with Sequelae]
  - Pyrexia [Not Recovered/Not Resolved]
  - Eye pain [Recovered/Resolved with Sequelae]
  - Abdominal pain upper [Not Recovered/Not Resolved]
  - Confusional state [Not Recovered/Not Resolved]
  - Intestinal obstruction [Not Recovered/Not Resolved]
  - Headache [Not Recovered/Not Resolved]
  - Lymphadenopathy [Not Recovered/Not Resolved]

NARRATIVE: CASE EVENT DATE: 20130101
